FAERS Safety Report 6163653-6 (Version None)
Quarter: 2009Q2

REPORT INFORMATION
  Report Type: 
  Country: None (occurrence: None)
  Receive Date: 20090420
  Receipt Date: 20081027
  Transmission Date: 20091009
  Serious: Yes (Hospitalization)
  Sender: FDA-Public Use
  Company Number: SPV1-2008-02255

PATIENT
  Age: 25 Year
  Sex: Male
  Weight: 77.1 kg

DRUGS (3)
  1. LIALDA [Suspect]
     Indication: CROHN'S DISEASE
     Dosage: DF, 1X/DAY:QD, ORAL
     Route: 048
     Dates: start: 20081001, end: 20081014
  2. BUDESONIDE [Concomitant]
  3. FERROSOL (FERROUS SULFATE) [Concomitant]

REACTIONS (2)
  - OFF LABEL USE [None]
  - PANCREATITIS [None]
